FAERS Safety Report 4488987-2 (Version None)
Quarter: 2004Q4

REPORT INFORMATION
  Report Type: 
  Country: None (occurrence: None)
  Receive Date: 20041029
  Receipt Date: 20041019
  Transmission Date: 20050328
  Serious: Yes (Hospitalization)
  Sender: FDA-Public Use
  Company Number: DE-BRISTOL-MYERS SQUIBB COMPANY-12737789

PATIENT
  Age: 54 Year
  Sex: Male
  Weight: 66 kg

DRUGS (2)
  1. CARBOPLATIN [Suspect]
     Indication: BRONCHIAL CARCINOMA
     Route: 042
     Dates: start: 20040802, end: 20040802
  2. VEPESID [Suspect]
     Indication: BRONCHIAL CARCINOMA
     Dosage: THERAPY DATES: 02 AND 03-AUG-2004
     Route: 042
     Dates: start: 20040802, end: 20040802

REACTIONS (3)
  - ACUTE MYOCARDIAL INFARCTION [None]
  - CARDIAC FAILURE [None]
  - PULMONARY OEDEMA [None]
